FAERS Safety Report 8816123 (Version 2)
Quarter: 2013Q1

REPORT INFORMATION
  Report Type: Report from Study
  Country: JP (occurrence: JP)
  Receive Date: 20120929
  Receipt Date: 20130115
  Transmission Date: 20140127
  Serious: Yes (Hospitalization, Other)
  Sender: FDA-Public Use
  Company Number: JP-009507513-1209JPN009274

PATIENT
  Age: 55 Year
  Sex: Female
  Weight: 67 kg

DRUGS (6)
  1. PEGINTRON [Suspect]
     Indication: CHRONIC HEPATITIS C
     Dosage: 1.5 MICROGRAM PER KILOGRAM, QW, DAILY DOSE UNKNOWN
     Route: 058
     Dates: start: 20120621, end: 20120830
  2. REBETOL [Suspect]
     Indication: CHRONIC HEPATITIS C
     Dosage: 800 MG, UNK, CUMULATIVE DOSE: 2400 MG
     Route: 048
     Dates: start: 20120621, end: 20120718
  3. REBETOL [Suspect]
     Dosage: 600 MG, UNK; CUMULATIVE DOSE: 2400 MG
     Route: 048
     Dates: start: 20120719, end: 20120726
  4. REBETOL [Suspect]
     Dosage: 400 MG, UNK; CUMULATIVE DOSE: 2400 MG
     Route: 048
     Dates: start: 20120727, end: 20120903
  5. TELAVIC [Suspect]
     Indication: CHRONIC HEPATITIS C
     Dosage: 2250 MG QD, CUMULATIVE DOSE: 6750 MG
     Route: 048
     Dates: start: 20120621, end: 20120809
  6. PARIET [Concomitant]
     Indication: PROPHYLAXIS
     Dosage: 10 MG, QD
     Route: 048

REACTIONS (3)
  - Face oedema [Recovered/Resolved]
  - Anaemia [Unknown]
  - Toxic skin eruption [Recovered/Resolved]
